FAERS Safety Report 8090146-1 (Version None)
Quarter: 2012Q1

REPORT INFORMATION
  Report Type: 
  Country: None (occurrence: None)
  Receive Date: 20120129
  Receipt Date: 20111018
  Transmission Date: 20120608
  Serious: No
  Sender: FDA-Public Use
  Company Number: US-ABBOTT-11P-163-0866543-00

PATIENT
  Age: 27 Year
  Sex: Female

DRUGS (4)
  1. SYNTHROID [Concomitant]
     Indication: PRODUCT USED FOR UNKNOWN INDICATION
  2. AZATHIOPRINE [Concomitant]
     Indication: PRODUCT USED FOR UNKNOWN INDICATION
  3. HUMIRA [Suspect]
     Indication: CROHN'S DISEASE
     Dates: start: 20110615
  4. SPRINTEC [Concomitant]
     Indication: CONTRACEPTION
     Dosage: DAILY

REACTIONS (4)
  - INJECTION SITE PAIN [None]
  - DRY SKIN [None]
  - NASAL DRYNESS [None]
  - INJECTION SITE ERYTHEMA [None]
